FAERS Safety Report 7881687-8 (Version None)
Quarter: 2011Q4

REPORT INFORMATION
  Report Type: 
  Country: None (occurrence: None)
  Receive Date: 20111101
  Receipt Date: 20110524
  Transmission Date: 20120403
  Serious: No
  Sender: FDA-Public Use
  Company Number: US-AMGEN-USASP2011027036

PATIENT
  Age: 53 Year
  Sex: Female

DRUGS (1)
  1. ENBREL [Suspect]
     Indication: RHEUMATOID ARTHRITIS
     Dosage: 50 MG, QWK
     Dates: start: 20110401

REACTIONS (6)
  - NERVOUSNESS [None]
  - HEART RATE INCREASED [None]
  - FEELING ABNORMAL [None]
  - POOR QUALITY SLEEP [None]
  - DYSPNOEA [None]
  - DIZZINESS [None]
